FAERS Safety Report 21129135 (Version 1)
Quarter: 2022Q3

REPORT INFORMATION
  Report Type: Spontaneous
  Country: US (occurrence: US)
  Receive Date: 20220725
  Receipt Date: 20220725
  Transmission Date: 20221027
  Serious: Yes (Death)
  Sender: FDA-Public Use
  Company Number: US-FreseniusKabi-FK202210305

PATIENT
  Age: 65 Year
  Sex: Female
  Weight: 98.88 kg

DRUGS (8)
  1. DIPHENHYDRAMINE [Suspect]
     Active Substance: DIPHENHYDRAMINE
     Indication: Product used for unknown indication
  2. CAFFEINE [Suspect]
     Active Substance: CAFFEINE
     Indication: Product used for unknown indication
  3. METOPROLOL [Suspect]
     Active Substance: METOPROLOL
     Indication: Product used for unknown indication
  4. DRONABINOL [Suspect]
     Active Substance: DRONABINOL
     Indication: Product used for unknown indication
  5. CANNABIDIOL [Suspect]
     Active Substance: CANNABIDIOL
     Indication: Product used for unknown indication
  6. CANNABINOL [Suspect]
     Active Substance: CANNABINOL
     Indication: Product used for unknown indication
  7. PSEUDOEPHEDRINE [Suspect]
     Active Substance: PSEUDOEPHEDRINE
     Indication: Product used for unknown indication
  8. DULOXETINE [Suspect]
     Active Substance: DULOXETINE
     Indication: Product used for unknown indication

REACTIONS (3)
  - Cardiotoxicity [Fatal]
  - Drug abuse [Fatal]
  - Overdose [Fatal]
